FAERS Safety Report 5720566-9 (Version None)
Quarter: 2008Q2

REPORT INFORMATION
  Report Type: 
  Country: None (occurrence: None)
  Receive Date: 20080428
  Receipt Date: 20080428
  Transmission Date: 20081010
  Serious: Yes (Life-Threatening, Other)
  Sender: FDA-Public Use
  Company Number: None

PATIENT
  Age: 51 Year
  Sex: Male
  Weight: 61.2356 kg

DRUGS (3)
  1. CYMBALTA [Suspect]
     Indication: GENERALISED ANXIETY DISORDER
     Dosage: 30MG TWICE PER DAY PO
     Route: 048
     Dates: start: 20080127, end: 20080310
  2. CYMBALTA [Suspect]
     Indication: MAJOR DEPRESSION
     Dosage: 30MG TWICE PER DAY PO
     Route: 048
     Dates: start: 20080127, end: 20080310
  3. CYMBALTA [Suspect]
     Indication: POST-TRAUMATIC STRESS DISORDER
     Dosage: 30MG TWICE PER DAY PO
     Route: 048
     Dates: start: 20080127, end: 20080310

REACTIONS (9)
  - ANXIETY [None]
  - DEPRESSION [None]
  - DRUG WITHDRAWAL SYNDROME [None]
  - INSOMNIA [None]
  - MOOD SWINGS [None]
  - MUSCLE SPASMS [None]
  - MYALGIA [None]
  - SLEEP DISORDER [None]
  - SUICIDAL IDEATION [None]
